FAERS Safety Report 8463031-0 (Version None)
Quarter: 2012Q2

REPORT INFORMATION
  Report Type: 
  Country: None (occurrence: None)
  Receive Date: 20120323
  Receipt Date: 20111222
  Transmission Date: 20120825
  Serious: Yes (Death)
  Sender: FDA-Public Use
  Company Number: 163-21880-11111020

PATIENT
  Age: 63 Year
  Sex: Female

DRUGS (21)
  1. CEPHALEXIN [Concomitant]
  2. FERROUS SULFATE TAB [Concomitant]
  3. METFFORMIN HYDROCHLORIDE [Concomitant]
  4. LASIX [Concomitant]
  5. REVLIMID [Suspect]
     Indication: MULTIPLE MYELOMA
     Dosage: DAILY FOR 21 DAYS
     Dates: start: 20110913, end: 20111017
  6. ASPIRIN [Concomitant]
  7. LISINOPRIL [Concomitant]
  8. FOSAMAX [Concomitant]
  9. ADVAIR DISKUS 100/50 [Concomitant]
  10. CLONIDINE [Concomitant]
  11. VERAPAMIL [Concomitant]
  12. BACLOFEN [Concomitant]
  13. PERCOCET [Concomitant]
  14. ALLOPURINOL [Concomitant]
  15. PENICILLIN [Concomitant]
  16. RESTASIS [Concomitant]
  17. ATENOLOL [Concomitant]
  18. DEXAEMTAHASONE (DEXAMETHASONE) [Concomitant]
  19. PAMIDRONATE (PAMIDRONATE) [Concomitant]
  20. LYRICA [Concomitant]
  21. SPIRIVA [Concomitant]

REACTIONS (1)
  - PNEUMONIA [None]
